FAERS Safety Report 13065551 (Version 5)
Quarter: 2017Q1

REPORT INFORMATION
  Report Type: Spontaneous
  Country: CA (occurrence: CA)
  Receive Date: 20161227
  Receipt Date: 20170206
  Transmission Date: 20170428
  Serious: Yes (Other)
  Sender: FDA-Public Use
  Company Number: CA-PFIZER INC-2016388311

PATIENT
  Age: 78 Year
  Sex: Female
  Weight: 54 kg

DRUGS (6)
  1. NAPROXEN. [Concomitant]
     Active Substance: NAPROXEN
     Indication: PAIN
     Dosage: 250 MG, 3X/DAY
     Route: 048
     Dates: start: 20160824
  2. ZOPICLONE [Concomitant]
     Active Substance: ZOPICLONE
     Indication: SLEEP DISORDER
     Dosage: 7.5 MG, DAILY AT NIGHT
     Route: 048
     Dates: start: 20160424
  3. SYNTHROID [Concomitant]
     Active Substance: LEVOTHYROXINE SODIUM
     Indication: THYROID DISORDER
     Dosage: 62.5 UG, DAILY
     Route: 048
     Dates: start: 20160424
  4. IBRANCE [Suspect]
     Active Substance: PALBOCICLIB
     Indication: BREAST CANCER METASTATIC
     Dosage: 125 MG, CYCLIC: DAILY FOR 3 WEEKS (21 DAYS), STOP 7 DAYS THEN REPEAT CYCLE
     Route: 048
     Dates: start: 201605, end: 201701
  5. NAPROXEN. [Concomitant]
     Active Substance: NAPROXEN
     Indication: INFLAMMATION
  6. LETROZOLE. [Concomitant]
     Active Substance: LETROZOLE
     Indication: NEOPLASM MALIGNANT
     Dosage: 2.5 MG, DAILY
     Route: 048
     Dates: start: 20160503

REACTIONS (14)
  - Fatigue [Not Recovered/Not Resolved]
  - Asthenia [Not Recovered/Not Resolved]
  - Local swelling [Not Recovered/Not Resolved]
  - Alopecia [Not Recovered/Not Resolved]
  - Hypersomnia [Recovering/Resolving]
  - Poor quality sleep [Recovered/Resolved]
  - Discomfort [Not Recovered/Not Resolved]
  - Diarrhoea [Recovered/Resolved]
  - Swelling face [Not Recovered/Not Resolved]
  - Pneumonia [Recovered/Resolved]
  - Hypoacusis [Recovering/Resolving]
  - Insomnia [Recovering/Resolving]
  - Headache [Recovered/Resolved]
  - Neoplasm progression [Not Recovered/Not Resolved]

NARRATIVE: CASE EVENT DATE: 2016
